FAERS Safety Report 4996795-9 (Version None)
Quarter: 2006Q2

REPORT INFORMATION
  Report Type: 
  Country: None (occurrence: None)
  Receive Date: 20060508
  Receipt Date: 20060508
  Transmission Date: 20061013
  Serious: Yes (Hospitalization)
  Sender: FDA-Public Use
  Company Number: None

PATIENT
  Age: 66 Year
  Sex: Female
  Weight: 68 kg

DRUGS (7)
  1. ERLOTINIB 100MG [Suspect]
     Indication: NON-SMALL CELL LUNG CANCER
     Dosage: 100 MG PO QD
     Route: 048
     Dates: start: 20060306, end: 20060430
  2. ADVIL [Concomitant]
  3. AEROBID [Concomitant]
  4. BACROBAN [Concomitant]
  5. COMBIVENT [Concomitant]
  6. ELIDYL [Concomitant]
  7. MULTI-VITAMIN [Concomitant]

REACTIONS (9)
  - ALANINE AMINOTRANSFERASE INCREASED [None]
  - ASPARTATE AMINOTRANSFERASE INCREASED [None]
  - BLOOD ALKALINE PHOSPHATASE INCREASED [None]
  - CHOLELITHIASIS [None]
  - CHROMATURIA [None]
  - COMPUTERISED TOMOGRAM ABDOMEN ABNORMAL [None]
  - HYPERBILIRUBINAEMIA [None]
  - JAUNDICE [None]
  - SKIN TOXICITY [None]
